FAERS Safety Report 19669366 (Version 2)
Quarter: 2021Q3

REPORT INFORMATION
  Report Type: Spontaneous
  Country: JP (occurrence: JP)
  Receive Date: 20210806
  Receipt Date: 20210908
  Transmission Date: 20211014
  Serious: Yes (Death)
  Sender: FDA-Public Use
  Company Number: JP-PFIZER INC-202100924440

PATIENT
  Age: 69 Year
  Sex: Male

DRUGS (1)
  1. CELECOX [Suspect]
     Active Substance: CELECOXIB
     Indication: CANCER PAIN
     Dosage: 200 MG (PER DAY, UNKNOWN FREQUENCY)
     Route: 048
     Dates: start: 20190426, end: 20190510

REACTIONS (2)
  - Blood creatinine increased [Fatal]
  - Off label use [Unknown]

NARRATIVE: CASE EVENT DATE: 20190426
